FAERS Safety Report 4978784-3 (Version None)
Quarter: 2006Q2

REPORT INFORMATION
  Report Type: 
  Country: None (occurrence: None)
  Receive Date: 20060420
  Receipt Date: 20051005
  Transmission Date: 20061013
  Serious: Yes (Hospitalization, Other)
  Sender: FDA-Public Use
  Company Number: US-MERCK-0510USA03935

PATIENT
  Age: 70 Year
  Sex: Male
  Weight: 99 kg

DRUGS (4)
  1. VIOXX [Suspect]
     Indication: RHEUMATOID ARTHRITIS
     Route: 048
     Dates: start: 20011214, end: 20040901
  2. BENTYL [Concomitant]
     Indication: HIATUS HERNIA
     Route: 065
  3. TYLENOL (CAPLET) [Concomitant]
     Route: 065
  4. ALBUTEROL [Concomitant]
     Indication: DYSPNOEA
     Route: 065

REACTIONS (18)
  - ACUTE MYOCARDIAL INFARCTION [None]
  - ARTERIOSCLEROSIS CORONARY ARTERY [None]
  - BLOOD CHOLESTEROL INCREASED [None]
  - BUNDLE BRANCH BLOCK RIGHT [None]
  - CEREBROVASCULAR ACCIDENT [None]
  - CHEST PAIN [None]
  - CHRONIC OBSTRUCTIVE PULMONARY DISEASE [None]
  - CORONARY ARTERY DISEASE [None]
  - CORONARY ARTERY OCCLUSION [None]
  - DYSPNOEA [None]
  - HEADACHE [None]
  - HIATUS HERNIA [None]
  - HYPERTENSION [None]
  - MELANOCYTIC NAEVUS [None]
  - PLANTAR FASCIITIS [None]
  - PRODUCTIVE COUGH [None]
  - PYREXIA [None]
  - SINUS BRADYCARDIA [None]
